FAERS Safety Report 20739056 (Version 3)
Quarter: 2022Q2

REPORT INFORMATION
  Report Type: Report from Study
  Country: US (occurrence: US)
  Receive Date: 20220422
  Receipt Date: 20220429
  Transmission Date: 20220721
  Serious: No
  Sender: FDA-Public Use
  Company Number: US-NOVARTISPH-NVSC2022US092600

PATIENT
  Age: 55 Year
  Sex: Female

DRUGS (1)
  1. KESIMPTA [Suspect]
     Active Substance: OFATUMUMAB
     Indication: Relapsing multiple sclerosis
     Dosage: 20 MG, QOD
     Route: 058
     Dates: start: 20211004

REACTIONS (6)
  - Band sensation [Unknown]
  - B-lymphocyte count decreased [Unknown]
  - Temperature intolerance [Unknown]
  - Glycosylated haemoglobin decreased [Unknown]
  - Osteoarthritis [Unknown]
  - Blood immunoglobulin M decreased [Unknown]

NARRATIVE: CASE EVENT DATE: 20220420
